FAERS Safety Report 8489711-9 (Version None)
Quarter: 2012Q3

REPORT INFORMATION
  Report Type: 
  Country: None (occurrence: None)
  Receive Date: 20120705
  Receipt Date: 20120704
  Transmission Date: 20120928
  Serious: Yes (Hospitalization)
  Sender: FDA-Public Use
  Company Number: FR-GLAXOSMITHKLINE-B0796872A

PATIENT
  Sex: Female

DRUGS (10)
  1. FUNGIZONE [Suspect]
     Indication: PRODUCT USED FOR UNKNOWN INDICATION
  2. CRESTOR [Suspect]
     Indication: PRODUCT USED FOR UNKNOWN INDICATION
     Route: 048
     Dates: start: 20120301
  3. ATOVAQUONE [Suspect]
     Indication: CEREBRAL TOXOPLASMOSIS
     Route: 065
     Dates: start: 20120115
  4. NEXIUM [Suspect]
     Indication: PRODUCT USED FOR UNKNOWN INDICATION
     Dosage: 40MG PER DAY
     Route: 048
     Dates: start: 20120125, end: 20120301
  5. RED BLOOD CELLS [Concomitant]
     Indication: ANAEMIA
     Route: 042
     Dates: start: 20120127, end: 20120127
  6. MOTILIUM [Concomitant]
  7. CALCIPARINE [Suspect]
     Indication: VENOUS THROMBOSIS
     Route: 065
     Dates: start: 20120101
  8. TRANDOLAPRIL [Suspect]
     Indication: RENAL FAILURE
     Route: 048
     Dates: start: 20120208
  9. FLUCONAZOLE [Suspect]
     Indication: PRODUCT USED FOR UNKNOWN INDICATION
     Dosage: 200MG PER DAY
     Route: 048
  10. POTASSIUM CHLORIDE [Concomitant]
     Dosage: 600MG TWICE PER DAY
     Dates: start: 20120201

REACTIONS (2)
  - CONDITION AGGRAVATED [None]
  - NEUTROPENIA [None]
